FAERS Safety Report 5299113-4 (Version None)
Quarter: 2007Q2

REPORT INFORMATION
  Report Type: 
  Country: None (occurrence: None)
  Receive Date: 20070417
  Receipt Date: 20070410
  Transmission Date: 20071010
  Serious: Yes (Life-Threatening)
  Sender: FDA-Public Use
  Company Number: GB-GLAXOSMITHKLINE-B0466445A

PATIENT
  Age: 47 Year
  Sex: Male

DRUGS (4)
  1. ONDANSETRON [Suspect]
     Dosage: 4MG PER DAY
     Route: 042
     Dates: start: 20060619, end: 20060619
  2. BUPIVACAINE [Concomitant]
     Dosage: 10ML PER DAY
     Route: 058
     Dates: start: 20060619, end: 20060619
  3. FENTANYL [Concomitant]
     Dosage: 60UG PER DAY
     Route: 042
     Dates: start: 20060619, end: 20060619
  4. PROPOFOL [Concomitant]
     Dosage: 250MG PER DAY
     Route: 042
     Dates: start: 20060619, end: 20060619

REACTIONS (3)
  - BRONCHOSPASM [None]
  - HYPOTENSION [None]
  - TRYPTASE INCREASED [None]
